FAERS Safety Report 16067622 (Version 6)
Quarter: 2019Q3

REPORT INFORMATION
  Report Type: Spontaneous
  Country: US (occurrence: US)
  Receive Date: 20190313
  Receipt Date: 20190911
  Transmission Date: 20191004
  Serious: No
  Sender: FDA-Public Use
  Company Number: US-PFIZER INC-2019102724

PATIENT
  Age: 58 Year
  Sex: Female
  Weight: 75.4 kg

DRUGS (4)
  1. FULVESTRANT. [Concomitant]
     Active Substance: FULVESTRANT
     Dosage: UNK
  2. CAPECITABINE. [Concomitant]
     Active Substance: CAPECITABINE
     Indication: BREAST CANCER FEMALE
     Dosage: 1500 MG, 2X/DAY [7 DAYS ON AND 7 DAYS OFF]
     Route: 048
  3. IBRANCE [Suspect]
     Active Substance: PALBOCICLIB
     Indication: BREAST CANCER METASTATIC
     Dosage: 125 MG, CYCLIC (ONCE DAILY FOR 21 DAYS)
     Dates: start: 20190212, end: 2019
  4. CARAFATE [Concomitant]
     Active Substance: SUCRALFATE
     Indication: OROPHARYNGEAL PAIN
     Dosage: 10 ML, AS NEEDED [(WITH MEALS AND AT BEDTIME) X 30 DAYS]
     Route: 048

REACTIONS (5)
  - Thinking abnormal [Recovered/Resolved]
  - Neoplasm progression [Unknown]
  - White blood cell count decreased [Recovered/Resolved]
  - Malaise [Recovered/Resolved]
  - Memory impairment [Recovered/Resolved]
